FAERS Safety Report 10038403 (Version 1)
Quarter: 2014Q1

REPORT INFORMATION
  Report Type: Report from Study
  Country: DE (occurrence: DE)
  Receive Date: 20140326
  Receipt Date: 20140326
  Transmission Date: 20141002
  Serious: Yes (Hospitalization)
  Sender: FDA-Public Use
  Company Number: PHHY2014DE033613

PATIENT
  Age: 40 Year
  Sex: Female
  Weight: 66.1 kg

DRUGS (15)
  1. IRINOTECAN [Suspect]
     Indication: COLON CANCER
     Dosage: 200 MG, BIW
     Route: 042
     Dates: start: 20131023
  2. 5-FLUOROURACIL [Suspect]
     Indication: COLON CANCER
     Dosage: 3770 MG, BIW
     Route: 040
     Dates: start: 20131023
  3. 5-FLUOROURACIL [Suspect]
     Indication: RECTAL CANCER
     Route: 042
  4. CALCIUM FOLINATE [Suspect]
     Dosage: 684 MG, BIW
     Route: 042
     Dates: start: 20131023
  5. CETUXIMAB [Suspect]
     Dosage: 427.5 MG, QW
     Route: 042
     Dates: start: 20131023
  6. FILGRASTIM [Concomitant]
     Indication: NEUTROPENIA
     Route: 058
  7. RANITIDIN [Concomitant]
     Route: 042
  8. CLEMASTIN [Concomitant]
     Route: 042
  9. DEXAMETHASONE [Concomitant]
     Route: 042
  10. ONDANSETRON [Concomitant]
     Dosage: 8 MG, UNK
     Route: 042
     Dates: start: 20131023
  11. PANTOZOL [Concomitant]
     Indication: GASTRITIS
     Dosage: 40 MG, UNK
     Route: 048
     Dates: start: 201304
  12. PARACETAMOL [Concomitant]
     Dosage: 1 G, UNK
     Route: 042
     Dates: start: 20140122, end: 20140125
  13. PARACETAMOL [Concomitant]
     Dosage: 1 G, UNK
     Route: 042
     Dates: start: 20140208, end: 20140210
  14. NOVALGINE [Concomitant]
     Dosage: 1 DF, UNK
     Route: 042
     Dates: start: 20140126, end: 20140126
  15. NOVALGINE [Concomitant]
     Dosage: 20 DRP, UNK
     Route: 048
     Dates: start: 20140208, end: 20140210

REACTIONS (2)
  - Stomatitis [Recovered/Resolved]
  - Mucosal inflammation [Recovered/Resolved]
